FAERS Safety Report 10665521 (Version 1)
Quarter: 2014Q4

REPORT INFORMATION
  Report Type: Spontaneous
  Country: US (occurrence: None)
  Receive Date: 20141208
  Receipt Date: 20141208
  Transmission Date: 20150529
  Serious: No
  Sender: FDA-Public Use
  Company Number: 2014TUS007330

PATIENT
  Age: 64 Year
  Sex: Female
  Weight: 99.8 kg

DRUGS (13)
  1. PREVACID [Concomitant]
     Active Substance: LANSOPRAZOLE
  2. ATIVAN [Concomitant]
     Active Substance: LORAZEPAM
  3. BRINTELLIX [Suspect]
     Active Substance: VORTIOXETINE HYDROBROMIDE
     Indication: MAJOR DEPRESSION
     Route: 048
     Dates: start: 20140807, end: 20140811
  4. LIBRAX /00033301/ (CHLORDIAZEPOXIDE HYDROCHLORIDE, CLIDINIUM BROMIDE) [Concomitant]
  5. BRINTELLIX [Suspect]
     Active Substance: VORTIOXETINE HYDROBROMIDE
     Indication: DEPRESSION
     Route: 048
     Dates: start: 20140807, end: 20140811
  6. LORAZEPAM (LORAZEPAM) [Concomitant]
     Active Substance: LORAZEPAM
  7. BACLOFEN. [Concomitant]
     Active Substance: BACLOFEN
  8. UNKNOWN MEDICATIONS (ALL OTHER THERAPEUTICS) [Concomitant]
  9. SYNTHROID [Concomitant]
     Active Substance: LEVOTHYROXINE SODIUM
  10. CARDIZEM [Concomitant]
     Active Substance: DILTIAZEM HYDROCHLORIDE
  11. SIMVASTATIN. [Concomitant]
     Active Substance: SIMVASTATIN
  12. BYSTOLIC [Concomitant]
     Active Substance: NEBIVOLOL HYDROCHLORIDE
  13. TRAMADOL [Concomitant]
     Active Substance: TRAMADOL

REACTIONS (4)
  - Nausea [None]
  - Diarrhoea [None]
  - Headache [None]
  - Insomnia [None]

NARRATIVE: CASE EVENT DATE: 20140807
